FAERS Safety Report 6466142-4 (Version None)
Quarter: 2009Q4

REPORT INFORMATION
  Report Type: 
  Country: None (occurrence: None)
  Receive Date: 20091201
  Receipt Date: 20091201
  Transmission Date: 20100525
  Serious: Yes (Hospitalization)
  Sender: FDA-Public Use
  Company Number: None

PATIENT
  Age: 15 Year
  Sex: Male
  Weight: 63.5036 kg

DRUGS (1)
  1. LAMICTAL [Suspect]
     Indication: IMPULSIVE BEHAVIOUR
     Dosage: 100MG 1 PER DAY PO
     Route: 048
     Dates: start: 20091101, end: 20091124

REACTIONS (1)
  - STEVENS-JOHNSON SYNDROME [None]
